FAERS Safety Report 4584726-5 (Version None)
Quarter: 2005Q1

REPORT INFORMATION
  Report Type: 
  Country: None (occurrence: None)
  Receive Date: 20050214
  Receipt Date: 20040920
  Transmission Date: 20050727
  Serious: Yes (Hospitalization)
  Sender: FDA-Public Use
  Company Number: 05-053

PATIENT
  Age: 31 Year
  Sex: Male

DRUGS (2)
  1. DEXAMETHASONE [Suspect]
     Indication: MYELOMA RECURRENCE
     Dosage: 140 MG
     Dates: start: 20020220, end: 20020302
  2. GENASENSE [Concomitant]

REACTIONS (5)
  - ABASIA [None]
  - BONE PAIN [None]
  - DRUG INEFFECTIVE [None]
  - PAIN [None]
  - PAIN IN EXTREMITY [None]
